FAERS Safety Report 24021781 (Version 4)
Quarter: 2024Q3

REPORT INFORMATION
  Report Type: Spontaneous
  Country: IN (occurrence: IN)
  Receive Date: 20240627
  Receipt Date: 20240710
  Transmission Date: 20241016
  Serious: No
  Sender: ROCHE
  Company Number: IN-ROCHE-3522876

PATIENT
  Age: 57 Year
  Sex: Male

DRUGS (3)
  1. VABYSMO [Suspect]
     Active Substance: FARICIMAB\FARICIMAB-SVOA
     Indication: Polypoidal choroidal vasculopathy
     Dosage: NEXT INFUSION START DATE: 23/APR/2024
     Route: 050
     Dates: start: 20240302
  2. EYLEA [Concomitant]
     Active Substance: AFLIBERCEPT
     Dates: start: 20220909
  3. CIPROFLOXACIN [Concomitant]
     Active Substance: CIPROFLOXACIN
     Dosage: 1 DROP 6 TIMES DAILY FOR 7 DAYS
     Route: 047
     Dates: start: 20240302

REACTIONS (3)
  - Off label use [Unknown]
  - No adverse event [Unknown]
  - Off label use [Unknown]

NARRATIVE: CASE EVENT DATE: 20240302
